FAERS Safety Report 24113405 (Version 2)
Quarter: 2024Q3

REPORT INFORMATION
  Report Type: Report from Study
  Country: CA (occurrence: CA)
  Receive Date: 20240719
  Receipt Date: 20240815
  Transmission Date: 20241016
  Serious: Yes (Other)
  Sender: ABBVIE
  Company Number: CA-ABBVIE-5842539

PATIENT
  Age: 78 Year
  Sex: Male

DRUGS (1)
  1. SKYRIZI [Suspect]
     Active Substance: RISANKIZUMAB-RZAA
     Indication: Crohn^s disease
     Dosage: LAST ADMIN DATE: 2024
     Route: 058
     Dates: start: 20240131

REACTIONS (1)
  - Colon neoplasm [Unknown]

NARRATIVE: CASE EVENT DATE: 20240101
